FAERS Safety Report 23935504 (Version 1)
Quarter: 2024Q2

REPORT INFORMATION
  Report Type: Spontaneous
  Country: US (occurrence: US)
  Receive Date: 20240604
  Receipt Date: 20240604
  Transmission Date: 20240716
  Serious: Yes (Other)
  Sender: FDA-Public Use
  Company Number: US-AUROBINDO-AUR-APL-2024-025320

PATIENT
  Age: 3 Month
  Sex: Male

DRUGS (8)
  1. AMPICILLIN [Suspect]
     Active Substance: AMPICILLIN
     Indication: Sepsis neonatal
     Dosage: UNK
     Route: 065
  2. GENTAMICIN [Suspect]
     Active Substance: GENTAMICIN
     Indication: Sepsis neonatal
  3. TOBRAMYCIN [Suspect]
     Active Substance: TOBRAMYCIN\TOBRAMYCIN SULFATE
     Indication: Septic shock
  4. TOBRAMYCIN [Suspect]
     Active Substance: TOBRAMYCIN\TOBRAMYCIN SULFATE
     Indication: Escherichia bacteraemia
  5. TOBRAMYCIN [Suspect]
     Active Substance: TOBRAMYCIN\TOBRAMYCIN SULFATE
     Indication: Meningitis
  6. CEFEPIME [Suspect]
     Active Substance: CEFEPIME HYDROCHLORIDE
     Indication: Septic shock
  7. CEFEPIME [Suspect]
     Active Substance: CEFEPIME HYDROCHLORIDE
     Indication: Escherichia bacteraemia
  8. CEFEPIME [Suspect]
     Active Substance: CEFEPIME HYDROCHLORIDE
     Indication: Meningitis

REACTIONS (2)
  - Therapeutic product effect incomplete [Unknown]
  - Drug resistance [Unknown]
